FAERS Safety Report 9707867 (Version 1)
Quarter: 2013Q4

REPORT INFORMATION
  Report Type: Spontaneous
  Country: US (occurrence: None)
  Receive Date: 20131122
  Receipt Date: 20131122
  Transmission Date: 20140711
  Serious: Yes (Other)
  Sender: FDA-Public Use
  Company Number: None

PATIENT
  Age: 57 Year
  Sex: Female
  Weight: 92.08 kg

DRUGS (6)
  1. TOPOSAR [Suspect]
     Indication: COLON CANCER
     Dosage: 162 MG  DAILY X 3 Q3W  INTRAVENOUS
     Route: 042
     Dates: start: 20131120, end: 20131120
  2. TOPOSAR [Suspect]
     Indication: METASTASES TO LIVER
     Dosage: 162 MG  DAILY X 3 Q3W  INTRAVENOUS
     Route: 042
     Dates: start: 20131120, end: 20131120
  3. DECADRON [Concomitant]
  4. KYTRIL [Concomitant]
  5. CARBOPLATIN [Concomitant]
  6. ETOPOSIDE [Concomitant]

REACTIONS (7)
  - Flushing [None]
  - Back pain [None]
  - Chest discomfort [None]
  - Nausea [None]
  - Presyncope [None]
  - Blood pressure systolic increased [None]
  - Oxygen saturation decreased [None]
